FAERS Safety Report 18482875 (Version 1)
Quarter: 2020Q4

REPORT INFORMATION
  Report Type: Report from Study
  Country: BN (occurrence: BN)
  Receive Date: 20201110
  Receipt Date: 20201110
  Transmission Date: 20210114
  Serious: Yes (Other)
  Sender: FDA-Public Use
  Company Number: BN-SUN PHARMACEUTICAL INDUSTRIES LTD-2020R1-266776

PATIENT
  Age: 67 Year
  Sex: Male

DRUGS (1)
  1. HYDROXYCHLOROQUINE [Suspect]
     Active Substance: HYDROXYCHLOROQUINE
     Indication: COVID-19
     Dosage: 1000 MG
     Route: 065

REACTIONS (1)
  - Bradycardia [Unknown]
